FAERS Safety Report 6604154-8 (Version None)
Quarter: 2010Q1

REPORT INFORMATION
  Report Type: 
  Country: None (occurrence: None)
  Receive Date: 20100226
  Receipt Date: 20090714
  Transmission Date: 20100710
  Serious: No
  Sender: FDA-Public Use
  Company Number: A0790409A

PATIENT
  Age: 60 Year
  Sex: Female
  Weight: 88.6 kg

DRUGS (5)
  1. LAMICTAL CD [Suspect]
     Route: 048
     Dates: start: 20081208
  2. GEODON [Concomitant]
  3. DIAVAN [Concomitant]
  4. THYROID TAB [Concomitant]
  5. CYTOMEL [Concomitant]

REACTIONS (1)
  - ALOPECIA [None]
